FAERS Safety Report 4567283-9 (Version None)
Quarter: 2005Q1

REPORT INFORMATION
  Report Type: 
  Country: None (occurrence: None)
  Receive Date: 20050127
  Receipt Date: 20050111
  Transmission Date: 20050727
  Serious: Yes (Hospitalization)
  Sender: FDA-Public Use
  Company Number: 206426

PATIENT
  Age: 58 Year
  Sex: Female

DRUGS (11)
  1. AVONEX [Suspect]
     Indication: MULTIPLE SCLEROSIS
     Dosage: 30 UG;QW;IM
     Route: 030
     Dates: start: 20010420, end: 20030101
  2. AVONEX [Suspect]
     Indication: MULTIPLE SCLEROSIS
     Dosage: 30 UG;QW;IM
     Route: 030
     Dates: start: 20030101, end: 20041001
  3. AVONEX [Suspect]
     Indication: MULTIPLE SCLEROSIS
     Dosage: 30 UG;QW;IM
     Route: 030
     Dates: start: 20040101
  4. COUMADIN [Concomitant]
  5. NAPROSYN [Concomitant]
  6. ESTRADIOL [Concomitant]
  7. PROMETRIUM [Concomitant]
  8. BACLOFEN [Concomitant]
  9. ULTRACET [Concomitant]
  10. ALBUTEROL [Concomitant]
  11. ORTHO-EST [Concomitant]

REACTIONS (1)
  - KNEE ARTHROPLASTY [None]
